FAERS Safety Report 9275183 (Version 2)
Quarter: 2013Q2

REPORT INFORMATION
  Report Type: Report from Study
  Country: DE (occurrence: DE)
  Receive Date: 20130507
  Receipt Date: 20130514
  Transmission Date: 20140414
  Serious: Yes (Hospitalization)
  Sender: FDA-Public Use
  Company Number: DE-JNJFOC-20130416282

PATIENT
  Age: 66 Year
  Sex: Male
  Weight: 102 kg

DRUGS (4)
  1. REMICADE [Suspect]
     Indication: COLITIS ULCERATIVE
     Route: 042
     Dates: start: 20100330, end: 20101130
  2. LYRICA [Concomitant]
     Indication: PAIN
     Route: 065
  3. NOVAMIN [Concomitant]
     Indication: PAIN
     Route: 065
  4. FENTANYL [Concomitant]
     Indication: PAIN
     Route: 062

REACTIONS (2)
  - Paraesthesia [Recovered/Resolved]
  - Herpes zoster [Recovered/Resolved]
